FAERS Safety Report 7647346-1 (Version None)
Quarter: 2011Q3

REPORT INFORMATION
  Report Type: 
  Country: None (occurrence: None)
  Receive Date: 20110801
  Receipt Date: 20110725
  Transmission Date: 20111222
  Serious: Yes (Other)
  Sender: FDA-Public Use
  Company Number: US-US-EMD SERONO, INC.-7070699

PATIENT
  Sex: Female
  Weight: 55 kg

DRUGS (5)
  1. UNSPECIFIED THYROID MEDICATION [Concomitant]
     Indication: THYROIDECTOMY
  2. ZANAFLEX [Concomitant]
     Indication: MUSCLE SPASMS
  3. REBIF [Suspect]
     Indication: MULTIPLE SCLEROSIS
     Route: 058
     Dates: start: 20080929
  4. BACLOFEN [Concomitant]
     Indication: MUSCLE SPASMS
  5. ASPIRIN [Concomitant]
     Indication: PREMEDICATION

REACTIONS (5)
  - BODY TEMPERATURE INCREASED [None]
  - SQUAMOUS CELL CARCINOMA [None]
  - MUSCULAR WEAKNESS [None]
  - MULTIPLE SCLEROSIS RELAPSE [None]
  - ANAEMIA [None]
